FAERS Safety Report 8307210-1 (Version None)
Quarter: 2012Q2

REPORT INFORMATION
  Report Type: 
  Country: None (occurrence: None)
  Receive Date: 20120419
  Receipt Date: 20120404
  Transmission Date: 20120825
  Serious: Yes (Death, Hospitalization, Other)
  Sender: FDA-Public Use
  Company Number: 2012SGN00106

PATIENT
  Age: 89 Year
  Sex: Female
  Weight: 65.8 kg

DRUGS (3)
  1. LEVOTHYROXINE SODIUM [Concomitant]
  2. ADCETRIS [Suspect]
     Indication: HODGKIN'S DISEASE
     Dosage: 1.8 MG/KG, INTRAVENOUS
     Route: 042
     Dates: start: 20111215, end: 20120106
  3. DILTIAZEM [Concomitant]

REACTIONS (6)
  - INJURY [None]
  - LUNG INFILTRATION [None]
  - PULMONARY TOXICITY [None]
  - OXYGEN SATURATION DECREASED [None]
  - RESPIRATORY DISTRESS [None]
  - FALL [None]
